FAERS Safety Report 12902538 (Version 1)
Quarter: 2016Q4

REPORT INFORMATION
  Report Type: Spontaneous
  Country: US (occurrence: US)
  Receive Date: 20161102
  Receipt Date: 20161102
  Transmission Date: 20170207
  Serious: Yes (Hospitalization)
  Sender: FDA-Public Use
  Company Number: PHHY2016US149109

PATIENT
  Age: 46 Year
  Sex: Female

DRUGS (2)
  1. PAZOPANIB [Suspect]
     Active Substance: PAZOPANIB
     Dosage: 600 MG, QD
     Route: 065
  2. PAZOPANIB [Suspect]
     Active Substance: PAZOPANIB
     Indication: ANGIOSARCOMA
     Dosage: 400 MG, QD
     Route: 065

REACTIONS (8)
  - Liver injury [Recovered/Resolved]
  - Jaundice [Recovered/Resolved]
  - Nausea [Recovered/Resolved]
  - Hepatotoxicity [Recovered/Resolved]
  - Enterocolitis [Recovered/Resolved]
  - Vomiting [Recovered/Resolved]
  - Gastrointestinal wall thickening [Recovered/Resolved]
  - Abdominal pain [Recovered/Resolved]
